FAERS Safety Report 4747409-4 (Version None)
Quarter: 2005Q3

REPORT INFORMATION
  Report Type: 
  Country: None (occurrence: None)
  Receive Date: 20050815
  Receipt Date: 20050621
  Transmission Date: 20060218
  Serious: No
  Sender: FDA-Public Use
  Company Number: USA050597358

PATIENT
  Age: 59 Year
  Sex: Male

DRUGS (8)
  1. CIALIS [Suspect]
     Indication: PROSTATECTOMY
     Dosage: 20 MG EVERY OTHER DAY
     Dates: start: 20050201
  2. CARDIZEM /00489701/ [Concomitant]
  3. ACCUPRIL [Concomitant]
  4. HYDROCHLOROTHIAZIDE [Concomitant]
  5. AZOPT [Concomitant]
  6. MIRTAZAPINE [Concomitant]
  7. TRAVATAN [Concomitant]
  8. BRIMONIDINE [Concomitant]

REACTIONS (1)
  - INTRAOCULAR PRESSURE INCREASED [None]
